FAERS Safety Report 8056744-6 (Version None)
Quarter: 2012Q1

REPORT INFORMATION
  Report Type: 
  Country: None (occurrence: None)
  Receive Date: 20120119
  Receipt Date: 20120112
  Transmission Date: 20120608
  Serious: Yes (Other)
  Sender: FDA-Public Use
  Company Number: US-GLAXOSMITHKLINE-A0775982A

PATIENT
  Age: 67 Year
  Sex: Male
  Weight: 100 kg

DRUGS (1)
  1. AVANDIA [Suspect]
     Indication: TYPE 2 DIABETES MELLITUS
     Dosage: 8MG UNKNOWN
     Route: 048
     Dates: end: 20070501

REACTIONS (6)
  - CARDIAC FAILURE CONGESTIVE [None]
  - SPEECH DISORDER [None]
  - ASTHENIA [None]
  - DYSGRAPHIA [None]
  - DIZZINESS [None]
  - GAIT DISTURBANCE [None]
